FAERS Safety Report 13764269 (Version 3)
Quarter: 2017Q3

REPORT INFORMATION
  Report Type: Spontaneous
  Country: AR (occurrence: AR)
  Receive Date: 20170718
  Receipt Date: 20170908
  Transmission Date: 20171127
  Serious: Yes (Hospitalization, Other)
  Sender: FDA-Public Use
  Company Number: AR-PFIZER INC-2017310653

PATIENT
  Age: 57 Year
  Sex: Female

DRUGS (1)
  1. IBRANCE [Suspect]
     Active Substance: PALBOCICLIB
     Indication: BREAST CANCER METASTATIC
     Dosage: 125 MG, CYCLIC (SCHEME 3/1)
     Dates: start: 20161026

REACTIONS (6)
  - White blood cell count decreased [Recovered/Resolved]
  - Pulmonary oedema [Recovered/Resolved]
  - Syncope [Recovering/Resolving]
  - Viral infection [Recovered/Resolved]
  - Feeling abnormal [Recovering/Resolving]
  - Dyspnoea [Recovering/Resolving]

NARRATIVE: CASE EVENT DATE: 201707
